FAERS Safety Report 6122690-8 (Version None)
Quarter: 2009Q1

REPORT INFORMATION
  Report Type: 
  Country: None (occurrence: None)
  Receive Date: 20090318
  Receipt Date: 20090311
  Transmission Date: 20090719
  Serious: Yes (Life-Threatening, Hospitalization)
  Sender: FDA-Public Use
  Company Number: GB-PFIZER INC-2006045110

PATIENT

DRUGS (8)
  1. SUNITINIB MALATE [Suspect]
     Indication: COLORECTAL CANCER METASTATIC
     Dosage: 50 MG, 1X/DAY
     Route: 048
     Dates: start: 20060217
  2. IRINOTECAN HCL [Suspect]
     Indication: COLORECTAL CANCER METASTATIC
     Dosage: 324 MG, EVERY 2 WEEKS
     Route: 042
     Dates: start: 20060215
  3. FLUOROURACIL [Suspect]
     Indication: COLORECTAL CANCER METASTATIC
     Dosage: 4032 MG, EVERY 2 WEEKS
     Route: 042
     Dates: start: 20060215
  4. CALCIUM FOLINATE [Suspect]
     Indication: COLORECTAL CANCER METASTATIC
     Dosage: 360 MG, EVERY 2 WEEKS
     Route: 042
     Dates: start: 20060215
  5. DEXAMETHASONE TAB [Concomitant]
     Route: 048
     Dates: start: 20060316, end: 20060319
  6. LANSOPRAZOLE [Concomitant]
     Route: 048
     Dates: start: 20060101
  7. GRANISETRON [Concomitant]
     Route: 048
     Dates: start: 20060307
  8. ORAMORPH SR [Concomitant]
     Route: 048
     Dates: start: 20060101

REACTIONS (1)
  - FEBRILE NEUTROPENIA [None]
